FAERS Safety Report 12435920 (Version 1)
Quarter: 2016Q2

REPORT INFORMATION
  Report Type: Spontaneous
  Country: TR (occurrence: TR)
  Receive Date: 20160604
  Receipt Date: 20160604
  Transmission Date: 20160815
  Serious: Yes (Other)
  Sender: FDA-Public Use
  Company Number: TR-ASTRAZENECA-2016SE58078

PATIENT
  Age: 80 Year
  Sex: Female

DRUGS (2)
  1. ANTIHYPERTENSIVES [Concomitant]
     Active Substance: UNSPECIFIED INGREDIENT
  2. FASLODEX [Suspect]
     Active Substance: FULVESTRANT
     Route: 030
     Dates: start: 201511, end: 201604

REACTIONS (3)
  - Carbohydrate antigen 15-3 increased [Recovered/Resolved]
  - Bone pain [Recovered/Resolved]
  - Metastases to bone [Recovered/Resolved]

NARRATIVE: CASE EVENT DATE: 201604
